FAERS Safety Report 5603366-X (Version None)
Quarter: 2008Q1

REPORT INFORMATION
  Report Type: 
  Country: None (occurrence: None)
  Receive Date: 20080122
  Receipt Date: 20080108
  Transmission Date: 20080703
  Serious: Yes (Death, Hospitalization)
  Sender: FDA-Public Use
  Company Number: PAR_02080_2008

PATIENT
  Age: 25 Year
  Sex: Male

DRUGS (12)
  1. IBUPROFEN [Suspect]
     Indication: PAIN IN EXTREMITY
     Dosage: (DF)
  2. CIPROFLOXACIN [Suspect]
     Indication: CHEST DISCOMFORT
     Dosage: (DF)
  3. LOPERAMIDE HYDROCHLORIDE (UNKNOWN) [Concomitant]
  4. BACTRIM [Concomitant]
  5. CLARITHROMYCIN [Suspect]
     Indication: CHEST DISCOMFORT
     Dosage: (DF)
  6. COMBIVIR [Suspect]
     Indication: ACQUIRED IMMUNODEFICIENCY SYNDROME
     Dosage: (DF)
  7. EFAVIRENZ [Suspect]
     Indication: ACQUIRED IMMUNODEFICIENCY SYNDROME
     Dosage: (DF)
  8. CO-TRIMOXAZOLE (CO-TRIMOXAZOLE) [Suspect]
     Indication: PNEUMOCYSTIS JIROVECI PNEUMONIA
     Dosage: (DF)
  9. CO-TRIMOXAZOLE (CO-TRIMOXAZOLE) [Suspect]
     Indication: PROPHYLAXIS
     Dosage: (DF)
  10. NEVIRAPINE [Suspect]
     Indication: ACQUIRED IMMUNODEFICIENCY SYNDROME
     Dosage: (DF)
  11. TENOFOVIR (TENOFOVIR) [Suspect]
     Indication: ACQUIRED IMMUNODEFICIENCY SYNDROME
     Dosage: (DF)
  12. LAMIVUDINE [Suspect]
     Indication: ACQUIRED IMMUNODEFICIENCY SYNDROME
     Dosage: (DF)

REACTIONS (9)
  - AGITATION [None]
  - CONFUSIONAL STATE [None]
  - COUGH [None]
  - CYTOMEGALOVIRUS INFECTION [None]
  - HAEMOGLOBIN DECREASED [None]
  - OCULAR ICTERUS [None]
  - PAIN IN EXTREMITY [None]
  - SEPSIS [None]
  - VANISHING BILE DUCT SYNDROME [None]
